FAERS Safety Report 11661952 (Version 1)
Quarter: 2015Q4

REPORT INFORMATION
  Report Type: Spontaneous
  Country: US (occurrence: US)
  Receive Date: 20151026
  Receipt Date: 20151026
  Transmission Date: 20160304
  Serious: No
  Sender: FDA-Public Use
  Company Number: US-BRISTOL-MYERS SQUIBB COMPANY-BMS-2015-071196

PATIENT
  Sex: Female
  Weight: 51.25 kg

DRUGS (1)
  1. OPDIVO [Suspect]
     Active Substance: NIVOLUMAB
     Indication: LUNG NEOPLASM MALIGNANT
     Route: 065

REACTIONS (10)
  - Fatigue [Unknown]
  - Insomnia [Unknown]
  - Eyelid oedema [Unknown]
  - Weight decreased [Unknown]
  - Lethargy [Unknown]
  - Memory impairment [Unknown]
  - Decreased appetite [Unknown]
  - Irritability [Unknown]
  - Dizziness [Unknown]
  - Musculoskeletal pain [Unknown]
